FAERS Safety Report 10419206 (Version 1)
Quarter: 2014Q2

REPORT INFORMATION
  Report Type: Report from Study
  Country: US (occurrence: None)
  Receive Date: 20140627
  Receipt Date: 20140627
  Transmission Date: 20141212
  Serious: No
  Sender: FDA-Public Use
  Company Number: CABO-14004068

PATIENT
  Age: 21 Year
  Sex: Female

DRUGS (6)
  1. COMETRIQ (CABOZANTINIB) CAPSULE [Suspect]
     Indication: RENAL CANCER
     Dates: start: 20140129
  2. OXYCONTIN (OXYCODONE HYDROCHLORIDE) [Concomitant]
  3. OXYCODONE (OXYCODONE) [Concomitant]
  4. GUAIPHENESIN (GUAIFENESIN) [Concomitant]
  5. OLANZAPINE (OLANZAPINE) [Concomitant]
  6. REGULAN (PSYLLIUM HYDROPHILIC MUCILLOID) [Concomitant]

REACTIONS (5)
  - Skin disorder [None]
  - Skin exfoliation [None]
  - Fatigue [None]
  - Hair colour changes [None]
  - Off label use [None]
